FAERS Safety Report 6095811-3 (Version None)
Quarter: 2009Q1

REPORT INFORMATION
  Report Type: 
  Country: None (occurrence: None)
  Receive Date: 20090227
  Receipt Date: 20080630
  Transmission Date: 20090719
  Serious: No
  Sender: FDA-Public Use
  Company Number: A0733716A

PATIENT
  Age: 41 Year
  Sex: Female

DRUGS (4)
  1. LAMICTAL [Suspect]
     Indication: BIPOLAR DISORDER
     Dosage: 200MG PER DAY
     Route: 048
     Dates: start: 20070501
  2. PROZAC [Concomitant]
  3. ADDERALL 10 [Concomitant]
  4. STRATTERA [Concomitant]

REACTIONS (7)
  - FATIGUE [None]
  - NASAL ULCER [None]
  - PARAESTHESIA [None]
  - SJOGREN'S SYNDROME [None]
  - SKIN LESION [None]
  - SWELLING FACE [None]
  - VISION BLURRED [None]
